FAERS Safety Report 24293636 (Version 1)
Quarter: 2024Q3

REPORT INFORMATION
  Report Type: Spontaneous
  Country: US (occurrence: None)
  Receive Date: 20240906
  Receipt Date: 20240906
  Transmission Date: 20241016
  Serious: No
  Sender: DOMPE FARMACEUTICI
  Company Number: US-FARMAPROD-202308-202402-0451

PATIENT
  Sex: Female

DRUGS (22)
  1. OXERVATE [Suspect]
     Active Substance: CENEGERMIN-BKBJ
     Indication: Neurotrophic keratopathy
     Route: 047
     Dates: start: 20240201
  2. KEPPRA [Concomitant]
     Active Substance: LEVETIRACETAM
  3. QUETIAPINE FUMARATE [Concomitant]
     Active Substance: QUETIAPINE FUMARATE
  4. LIPITOR [Concomitant]
     Active Substance: ATORVASTATIN CALCIUM
  5. ACETAMINOPHEN\OXYCODONE HYDROCHLORIDE [Concomitant]
     Active Substance: ACETAMINOPHEN\OXYCODONE HYDROCHLORIDE
  6. VITAMINS [Concomitant]
     Active Substance: VITAMINS
  7. LOMOTIL [Concomitant]
     Active Substance: ATROPINE SULFATE\DIPHENOXYLATE HYDROCHLORIDE
     Dosage: 2.5-.025MG
  8. IMODIUM [Concomitant]
     Active Substance: LOPERAMIDE HYDROCHLORIDE
  9. MAGNESIUM [Concomitant]
     Active Substance: MAGNESIUM
  10. MELATONIN [Concomitant]
     Active Substance: MELATONIN
  11. AIMOVIG [Concomitant]
     Active Substance: ERENUMAB-AOOE
     Dosage: AUTOINJECTOR
  12. OMEPRAZOLE [Concomitant]
     Active Substance: OMEPRAZOLE
  13. PROBIOTICS NOS [Concomitant]
     Active Substance: PROBIOTICS NOS
     Dosage: 10 BILLION OF CELLS
  14. FIORICET [Concomitant]
     Active Substance: ACETAMINOPHEN\BUTALBITAL\CAFFEINE
     Dosage: 50-300-40
  15. RESTASIS [Concomitant]
     Active Substance: CYCLOSPORINE
  16. SPIRIVA RESPIMAT [Concomitant]
     Active Substance: TIOTROPIUM BROMIDE
     Dosage: MIST INHALER
  17. ALBUTEROL SULFATE [Concomitant]
     Active Substance: ALBUTEROL SULFATE
     Dosage: HYDROFLUOROALKANE
  18. BREYNA [Concomitant]
     Active Substance: BUDESONIDE\FORMOTEROL FUMARATE
     Dosage: 80-4.5 MCG HYDROFLUOROALKANE, AEROSOL WITH ADAPTER
  19. CLONAZEPAM [Concomitant]
     Active Substance: CLONAZEPAM
  20. TRAZODONE HCL [Concomitant]
     Active Substance: TRAZODONE HYDROCHLORIDE
  21. LEVOTHYROXINE SODIUM [Concomitant]
     Active Substance: LEVOTHYROXINE SODIUM
  22. BOTOX [Concomitant]
     Active Substance: ONABOTULINUMTOXINA

REACTIONS (2)
  - Eye pain [Not Recovered/Not Resolved]
  - Photophobia [Not Recovered/Not Resolved]
